FAERS Safety Report 9006065 (Version 1)
Quarter: 2013Q1

REPORT INFORMATION
  Report Type: Spontaneous
  Country: US (occurrence: US)
  Receive Date: 20130109
  Receipt Date: 20130109
  Transmission Date: 20140127
  Serious: Yes (Other)
  Sender: FDA-Public Use
  Company Number: CHPA2012US026102

PATIENT
  Age: 10 Year
  Sex: Female

DRUGS (1)
  1. SLOW FE BROWN [Suspect]
     Indication: PICA
     Dosage: 1 DF PER DAY
     Route: 048
     Dates: start: 2011, end: 2012

REACTIONS (5)
  - Pica [Not Recovered/Not Resolved]
  - Rebound effect [Not Recovered/Not Resolved]
  - Therapeutic response unexpected [Unknown]
  - Off label use [Unknown]
  - Prescribed overdose [Unknown]
